FAERS Safety Report 14991124 (Version 1)
Quarter: 2018Q2

REPORT INFORMATION
  Report Type: Report from Study
  Country: FR (occurrence: FR)
  Receive Date: 20180608
  Receipt Date: 20180608
  Transmission Date: 20180711
  Serious: Yes (Disabling)
  Sender: FDA-Public Use
  Company Number: FR-SA-2017SA206545

PATIENT
  Age: 64 Year
  Sex: Female
  Weight: 49 kg

DRUGS (6)
  1. SEROPRAM [CITALOPRAM HYDROCHLORIDE] [Concomitant]
     Indication: DEPRESSION
     Dosage: 20 MG,UNK
     Route: 048
     Dates: start: 2014
  2. ELIGLUSTAT. [Suspect]
     Active Substance: ELIGLUSTAT
     Indication: GAUCHER^S DISEASE TYPE I
     Dosage: UNK UNK,UNK
     Route: 065
     Dates: start: 20110601
  3. LEVOTHYROXINE. [Concomitant]
     Active Substance: LEVOTHYROXINE
     Indication: THYROIDECTOMY
     Dosage: 150 UG,UNK
     Route: 048
     Dates: start: 201606
  4. MODOPAR [Concomitant]
     Active Substance: BENSERAZIDE HYDROCHLORIDE\LEVODOPA
     Indication: PARKINSON^S DISEASE
     Dosage: 375 MG,UNK
     Route: 048
     Dates: start: 20160505
  5. XEROQUEL [Concomitant]
     Active Substance: QUETIAPINE FUMARATE
     Indication: HALLUCINATION
     Dosage: 150 MG,UNK
     Route: 048
     Dates: start: 20160511
  6. ESOMEPRAZOLE MAGNESIUM. [Concomitant]
     Active Substance: ESOMEPRAZOLE MAGNESIUM
     Indication: ABDOMINAL PAIN UPPER
     Dosage: 40 MG,UNK
     Route: 048
     Dates: start: 2000

REACTIONS (2)
  - Loss of consciousness [Recovered/Resolved]
  - Cognitive disorder [Not Recovered/Not Resolved]

NARRATIVE: CASE EVENT DATE: 20170715
